FAERS Safety Report 10312943 (Version 1)
Quarter: 2014Q3

REPORT INFORMATION
  Report Type: Spontaneous
  Country: US (occurrence: None)
  Receive Date: 20140717
  Receipt Date: 20140717
  Transmission Date: 20150326
  Serious: No
  Sender: FDA-Public Use
  Company Number: None

PATIENT
  Age: 76 Year
  Sex: Male
  Weight: 79.38 kg

DRUGS (1)
  1. METOPROLOL TARTRATE. [Suspect]
     Active Substance: METOPROLOL TARTRATE
     Dosage: 3 PILLS TWICE DAILY TAKEN BY MOUTH
     Route: 048

REACTIONS (2)
  - Blood pressure diastolic increased [None]
  - Product substitution issue [None]

NARRATIVE: CASE EVENT DATE: 20140701
